FAERS Safety Report 14436163 (Version 1)
Quarter: 2018Q1

REPORT INFORMATION
  Report Type: Spontaneous
  Country: US (occurrence: US)
  Receive Date: 20180125
  Receipt Date: 20180125
  Transmission Date: 20180509
  Serious: No
  Sender: FDA-Public Use
  Company Number: US-UNITED THERAPEUTICS-UNT-2017-010007

PATIENT
  Age: 74 Year
  Sex: Male
  Weight: 81.63 kg

DRUGS (3)
  1. REMODULIN [Suspect]
     Active Substance: TREPROSTINIL
     Dosage: 0.068 ?G/KG, CONTINUING
     Route: 041
  2. OPSUMIT [Concomitant]
     Active Substance: MACITENTAN
     Indication: PRODUCT USED FOR UNKNOWN INDICATION
  3. REMODULIN [Suspect]
     Active Substance: TREPROSTINIL
     Indication: PULMONARY ARTERIAL HYPERTENSION
     Dosage: 0.078 ?G/KG, CONTINUING
     Route: 041
     Dates: start: 20101229

REACTIONS (3)
  - Asthenia [Unknown]
  - Dyspnoea [Unknown]
  - Lethargy [Unknown]

NARRATIVE: CASE EVENT DATE: 201706
